FAERS Safety Report 9706971 (Version 1)
Quarter: 2013Q4

REPORT INFORMATION
  Report Type: Spontaneous
  Country: US (occurrence: None)
  Receive Date: 20131122
  Receipt Date: 20131122
  Transmission Date: 20140711
  Serious: No
  Sender: FDA-Public Use
  Company Number: None

PATIENT
  Age: 77 Year
  Sex: Female
  Weight: 61.24 kg

DRUGS (1)
  1. XARELTO 20MG JANSSEN [Suspect]
     Indication: THROMBOSIS
     Dates: start: 201307

REACTIONS (2)
  - Hair texture abnormal [None]
  - Alopecia [None]
